FAERS Safety Report 21400610 (Version 3)
Quarter: 2024Q3

REPORT INFORMATION
  Report Type: Report from Study
  Country: US (occurrence: US)
  Receive Date: 20221003
  Receipt Date: 20240916
  Transmission Date: 20241016
  Serious: No
  Sender: ABBVIE
  Company Number: US-ABBVIE-4134182

PATIENT
  Sex: Female

DRUGS (4)
  1. HUMIRA [Suspect]
     Active Substance: ADALIMUMAB
     Indication: Hidradenitis
     Route: 058
     Dates: start: 20180212
  2. HUMIRA [Suspect]
     Active Substance: ADALIMUMAB
     Dosage: THIRD DOSE REGINEM
     Route: 058
     Dates: start: 2022
  3. HUMIRA [Suspect]
     Active Substance: ADALIMUMAB
     Dosage: DOSE INCREASED, TAKE 80 MG IN ONE WEEK AND 40MG IN NEXT WEEK. LAST ADMIN  DATE:2022?ONCE
     Route: 058
     Dates: start: 202209
  4. TEZSPIRE [Concomitant]
     Active Substance: TEZEPELUMAB-EKKO
     Indication: Product used for unknown indication

REACTIONS (6)
  - Aphonia [Not Recovered/Not Resolved]
  - Asthma [Not Recovered/Not Resolved]
  - Hidradenitis [Recovering/Resolving]
  - Headache [Not Recovered/Not Resolved]
  - Ear infection [Recovering/Resolving]
  - Perfume sensitivity [Unknown]

NARRATIVE: CASE EVENT DATE: 20220101
